FAERS Safety Report 7683547-4 (Version None)
Quarter: 2011Q3

REPORT INFORMATION
  Report Type: 
  Country: None (occurrence: None)
  Receive Date: 20110815
  Receipt Date: 20110804
  Transmission Date: 20111222
  Serious: Yes (Other)
  Sender: FDA-Public Use
  Company Number: US-TYCO HEALTHCARE/MALLINCKRODT-T201101544

PATIENT
  Sex: Female

DRUGS (5)
  1. ADVAIR DISKUS 100/50 [Concomitant]
     Indication: ASTHMA
  2. HYDROCODONE BITARTRATE AND ACETAMINOPHEN [Suspect]
     Indication: PAIN
     Dosage: 1 TABLET Q 6 HR AS NECESSARY
     Route: 048
     Dates: start: 20110726, end: 20110728
  3. SINGULAIR [Concomitant]
     Indication: ASTHMA
  4. NEXIUM [Concomitant]
     Indication: GASTROOESOPHAGEAL REFLUX DISEASE
  5. SYNTHROID [Concomitant]
     Indication: THYROID DISORDER

REACTIONS (2)
  - MYDRIASIS [None]
  - VISUAL IMPAIRMENT [None]
